FAERS Safety Report 8200145-4 (Version None)
Quarter: 2012Q1

REPORT INFORMATION
  Report Type: 
  Country: None (occurrence: None)
  Receive Date: 20120309
  Receipt Date: 20120309
  Transmission Date: 20120608
  Serious: Yes (Other)
  Sender: FDA-Public Use
  Company Number: None

PATIENT
  Sex: Female
  Weight: 55.3388 kg

DRUGS (1)
  1. FLUOXETINE HCL [Suspect]
     Indication: DEPRESSION
     Dosage: 20MG 1 DAILY
     Dates: start: 20120207, end: 20120213

REACTIONS (4)
  - MALAISE [None]
  - PRODUCT QUALITY ISSUE [None]
  - DECREASED APPETITE [None]
  - WEIGHT DECREASED [None]
